FAERS Safety Report 23132716 (Version 1)
Quarter: 2023Q4

REPORT INFORMATION
  Report Type: Spontaneous
  Country: US (occurrence: US)
  Receive Date: 20231101
  Receipt Date: 20231101
  Transmission Date: 20240110
  Serious: Yes (Hospitalization)
  Sender: FDA-Public Use
  Company Number: US-ABBVIE-5473238

PATIENT

DRUGS (1)
  1. LEXAPRO [Suspect]
     Active Substance: ESCITALOPRAM OXALATE
     Indication: Product used for unknown indication
     Route: 048

REACTIONS (11)
  - Hospitalisation [Unknown]
  - Diarrhoea haemorrhagic [Unknown]
  - Contusion [Unknown]
  - Hallucination [Unknown]
  - Memory impairment [Unknown]
  - Sleep deficit [Unknown]
  - Nausea [Unknown]
  - Drug withdrawal syndrome [Recovered/Resolved]
  - Arrhythmia [Unknown]
  - Visual impairment [Unknown]
  - Gait inability [Unknown]
